FAERS Safety Report 18035493 (Version 1)
Quarter: 2020Q3

REPORT INFORMATION
  Report Type: Spontaneous
  Country: US (occurrence: US)
  Receive Date: 20200716
  Receipt Date: 20200716
  Transmission Date: 20201103
  Serious: Yes (Life-Threatening, Hospitalization)
  Sender: FDA-Public Use
  Company Number: None

PATIENT
  Age: 72 Year
  Sex: Male
  Weight: 60.7 kg

DRUGS (1)
  1. QUININE CAPSULE [Suspect]
     Active Substance: QUININE SULFATE
     Indication: BABESIOSIS
     Dates: start: 20200708, end: 20200712

REACTIONS (5)
  - Hypoxia [None]
  - Infection [None]
  - Hypotension [None]
  - Hypoglycaemia [None]
  - Coma [None]

NARRATIVE: CASE EVENT DATE: 20190712
